FAERS Safety Report 25742357 (Version 6)
Quarter: 2025Q4

REPORT INFORMATION
  Report Type: Spontaneous
  Country: CO (occurrence: CO)
  Receive Date: 20250829
  Receipt Date: 20251027
  Transmission Date: 20260117
  Serious: No
  Sender: PFIZER
  Company Number: CO-PFIZER INC-PV202500102777

PATIENT
  Age: 6 Year
  Sex: Male
  Weight: 16.4 kg

DRUGS (2)
  1. GENOTROPIN [Suspect]
     Active Substance: SOMATROPIN
     Indication: Growth hormone deficiency
     Dosage: 0.6 MG, DAILY
     Dates: start: 202411
  2. GENOTROPIN [Suspect]
     Active Substance: SOMATROPIN
     Dosage: 0.8 MG
     Dates: start: 202411

REACTIONS (6)
  - Incorrect dose administered by device [Unknown]
  - Device delivery system issue [Unknown]
  - Device physical property issue [Unknown]
  - Device information output issue [Unknown]
  - Device power source issue [Unknown]
  - Device defective [Unknown]
